FAERS Safety Report 15110404 (Version 1)
Quarter: 2018Q3

REPORT INFORMATION
  Report Type: Spontaneous
  Country: MX (occurrence: MX)
  Receive Date: 20180705
  Receipt Date: 20180705
  Transmission Date: 20181010
  Serious: Yes (Other)
  Sender: FDA-Public Use
  Company Number: MX-SA-2018SA167834

PATIENT
  Age: 78 Year
  Sex: Female
  Weight: 80 kg

DRUGS (5)
  1. NIFEDIPINE. [Concomitant]
     Active Substance: NIFEDIPINE
     Route: 065
  2. COAPROVEL [Suspect]
     Active Substance: HYDROCHLOROTHIAZIDE\IRBESARTAN
     Indication: HYPERTENSION
     Dosage: 1 DF, QD
     Route: 048
  3. GLIMETAL [Concomitant]
     Indication: TYPE 2 DIABETES MELLITUS
     Dosage: 1 DF, QD
     Route: 048
     Dates: start: 201805
  4. ZYLOPRIM [Concomitant]
     Active Substance: ALLOPURINOL
     Indication: HYPERURICAEMIA
     Dosage: 1 DF, QD
     Route: 048
     Dates: start: 201805
  5. COAPROVEL [Suspect]
     Active Substance: HYDROCHLOROTHIAZIDE\IRBESARTAN
     Dosage: 1 UNK
     Route: 048
     Dates: start: 20180613, end: 20180614

REACTIONS (5)
  - Hyperuricaemia [Not Recovered/Not Resolved]
  - Hypertension [Recovered/Resolved]
  - Diabetes mellitus [Not Recovered/Not Resolved]
  - Asthenia [Recovered/Resolved]
  - Dyspnoea [Recovered/Resolved]

NARRATIVE: CASE EVENT DATE: 201805
